FAERS Safety Report 23909122 (Version 1)
Quarter: 2024Q2

REPORT INFORMATION
  Report Type: Report from Study
  Country: US (occurrence: US)
  Receive Date: 20240528
  Receipt Date: 20240528
  Transmission Date: 20240715
  Serious: Yes (Hospitalization, Congenital Anomaly, Other)
  Sender: FDA-Public Use
  Company Number: US-BRISTOL-MYERS SQUIBB COMPANY-2024-079568

PATIENT
  Age: 66 Year
  Sex: Female
  Weight: 71.67 kg

DRUGS (7)
  1. POMALYST [Suspect]
     Active Substance: POMALIDOMIDE
     Indication: Plasma cell myeloma
     Dosage: FREQUENCY: DAILY FOR 21 DAYS
     Route: 048
  2. POMALYST [Suspect]
     Active Substance: POMALIDOMIDE
     Dates: start: 202104
  3. POMALYST [Suspect]
     Active Substance: POMALIDOMIDE
     Dates: start: 20230828
  4. REVLIMID [Concomitant]
     Active Substance: LENALIDOMIDE
     Indication: Product used for unknown indication
  5. NINLARO [Concomitant]
     Active Substance: IXAZOMIB CITRATE
     Indication: Product used for unknown indication
  6. ACETYLCYSTEINE [Concomitant]
     Active Substance: ACETYLCYSTEINE
     Indication: Product used for unknown indication
  7. GLUTAMINE [ALANYL GLUTAMINE] [Concomitant]
     Indication: Product used for unknown indication

REACTIONS (5)
  - Immune system disorder [Unknown]
  - Rhinovirus infection [Unknown]
  - Gastroenteritis viral [Unknown]
  - Pneumonia [Unknown]
  - Myotonic dystrophy [Unknown]
